FAERS Safety Report 6401444-9 (Version None)
Quarter: 2009Q4

REPORT INFORMATION
  Report Type: 
  Country: None (occurrence: None)
  Receive Date: 20091015
  Receipt Date: 20091012
  Transmission Date: 20100525
  Serious: Yes (Hospitalization)
  Sender: FDA-Public Use
  Company Number: IT-BRISTOL-MYERS SQUIBB COMPANY-14814784

PATIENT
  Age: 48 Year
  Sex: Female

DRUGS (1)
  1. IXABEPILONE [Suspect]
     Dosage: ROUTE :EV
     Dates: start: 20080925, end: 20081202

REACTIONS (2)
  - URINARY RETENTION [None]
  - URINARY TRACT INFECTION [None]
